FAERS Safety Report 5803400-8 (Version None)
Quarter: 2008Q3

REPORT INFORMATION
  Report Type: 
  Country: None (occurrence: None)
  Receive Date: 20080708
  Receipt Date: 20080630
  Transmission Date: 20090109
  Serious: Yes (Hospitalization)
  Sender: FDA-Public Use
  Company Number: JP-EISAI MEDICAL RESEARCH-E2020-02907-SPO-JP

PATIENT
  Age: 74 Year
  Sex: Female

DRUGS (6)
  1. ARICEPT [Suspect]
     Indication: DRUG USE FOR UNKNOWN INDICATION
     Dosage: UNKNOWN
     Route: 048
     Dates: end: 20080611
  2. ARICEPT [Suspect]
     Dosage: UNKNOWN
     Route: 048
     Dates: start: 20080601
  3. RISPERDAL [Suspect]
     Indication: DRUG USE FOR UNKNOWN INDICATION
     Dosage: UNKNOWN
     Route: 048
     Dates: end: 20080611
  4. DIOVAN [Suspect]
     Indication: DRUG USE FOR UNKNOWN INDICATION
     Dosage: UNKNOWN
     Route: 048
     Dates: end: 20080611
  5. DIOVAN [Suspect]
     Dosage: UNKNOWN
     Route: 048
     Dates: start: 20080601
  6. ^UNSPECIFIED PSYCHOPHARMACEUTICALS^ [Concomitant]
     Dosage: UNKNOWN
     Route: 048
     Dates: start: 20080501

REACTIONS (2)
  - BLOOD CREATINE PHOSPHOKINASE INCREASED [None]
  - RHABDOMYOLYSIS [None]
